FAERS Safety Report 9548957 (Version 1)
Quarter: 2013Q3

REPORT INFORMATION
  Report Type: Spontaneous
  Country: ES (occurrence: ES)
  Receive Date: 20130924
  Receipt Date: 20130924
  Transmission Date: 20140515
  Serious: Yes (Life-Threatening, Hospitalization)
  Sender: FDA-Public Use
  Company Number: PHHY2013ES105818

PATIENT
  Age: 48 Year
  Sex: Male

DRUGS (7)
  1. SANDIMMUN NEORAL / OL [Suspect]
     Indication: HEART TRANSPLANT
     Dosage: 300 MG, DAILY
     Route: 048
     Dates: start: 201205
  2. CELLCEPT [Suspect]
     Indication: HEART TRANSPLANT
     Dosage: 1.5 G, DAILY
     Route: 048
     Dates: start: 201205, end: 20121117
  3. CELLCEPT [Suspect]
     Dosage: 1 G, DAILY
  4. SEPTRIN FORTE [Suspect]
     Indication: PROPHYLAXIS
     Dosage: 2.4 MG, WEEKLY
     Route: 048
     Dates: start: 20120604, end: 20121120
  5. VALCYTE [Suspect]
     Indication: CYTOMEGALOVIRUS INFECTION
     Dosage: 900 MG, DAILY
     Route: 048
     Dates: start: 20121009, end: 20121120
  6. PREDNISONE [Concomitant]
     Indication: HEART TRANSPLANT
     Dosage: 10 MG, DAILY
     Route: 048
     Dates: start: 201205, end: 20121117
  7. SIMVASTATIN [Concomitant]
     Indication: HYPERLIPIDAEMIA
     Dosage: 10 MG, DAILY
     Route: 048
     Dates: start: 201205, end: 20121117

REACTIONS (2)
  - Agranulocytosis [Recovered/Resolved]
  - Pyrexia [Recovered/Resolved]
